FAERS Safety Report 9325118 (Version 1)
Quarter: 2013Q2

REPORT INFORMATION
  Report Type: Spontaneous
  Country: US (occurrence: None)
  Receive Date: 20130529
  Receipt Date: 20130529
  Transmission Date: 20140414
  Serious: Yes (Other)
  Sender: FDA-Public Use
  Company Number: B0894968A

PATIENT
  Age: 64 Year
  Sex: Male

DRUGS (2)
  1. FLUTICASONE [Suspect]
     Indication: RHINITIS ALLERGIC
     Dosage: INTRANASAL
     Route: 045
  2. NEFAZODONE [Suspect]
     Indication: DEPRESSION

REACTIONS (1)
  - Adrenal insufficiency [None]
